FAERS Safety Report 6402980-1 (Version None)
Quarter: 2009Q4

REPORT INFORMATION
  Report Type: 
  Country: None (occurrence: None)
  Receive Date: 20091016
  Receipt Date: 20091008
  Transmission Date: 20100525
  Serious: Yes (Hospitalization, Other)
  Sender: FDA-Public Use
  Company Number: NZ-ELI_LILLY_AND_COMPANY-NZ200910001658

PATIENT
  Age: 75 Year
  Sex: Female

DRUGS (2)
  1. HUMALOG MIX 75/25 [Suspect]
     Indication: TYPE 2 DIABETES MELLITUS
     Dosage: 36 IU, DAILY (1/D)
     Route: 058
  2. HUMALOG MIX 75/25 [Suspect]
     Dosage: 48 IU, DAILY (1/D)
     Route: 058

REACTIONS (5)
  - BLOOD GLUCOSE INCREASED [None]
  - DEVICE FAILURE [None]
  - HYPOGLYCAEMIC UNCONSCIOUSNESS [None]
  - UNDERDOSE [None]
  - WRONG TECHNIQUE IN DRUG USAGE PROCESS [None]
